FAERS Safety Report 5935179-3 (Version None)
Quarter: 2008Q4

REPORT INFORMATION
  Report Type: 
  Country: None (occurrence: None)
  Receive Date: 20081028
  Receipt Date: 20081022
  Transmission Date: 20090506
  Serious: Yes (Other)
  Sender: FDA-Public Use
  Company Number: 2008SP021534

PATIENT
  Age: 10 Year
  Sex: Female

DRUGS (1)
  1. MIRALAX [Suspect]
     Dosage: PO
     Route: 048

REACTIONS (3)
  - CHOLECYSTECTOMY [None]
  - NAUSEA [None]
  - VOMITING [None]
